FAERS Safety Report 10100343 (Version 1)
Quarter: 2014Q2

REPORT INFORMATION
  Report Type: Spontaneous
  Country: US (occurrence: US)
  Receive Date: 20140423
  Receipt Date: 20140423
  Transmission Date: 20141212
  Serious: No
  Sender: FDA-Public Use
  Company Number: US-ASTRAZENECA-2014SE24205

PATIENT
  Age: 65 Year
  Sex: Male

DRUGS (1)
  1. ATACAND HCT [Suspect]
     Route: 048

REACTIONS (2)
  - Blood pressure increased [Unknown]
  - Intentional product misuse [Not Recovered/Not Resolved]
